FAERS Safety Report 11543260 (Version 3)
Quarter: 2015Q4

REPORT INFORMATION
  Report Type: Spontaneous
  Country: US (occurrence: US)
  Receive Date: 20150923
  Receipt Date: 20151029
  Transmission Date: 20160304
  Serious: No
  Sender: FDA-Public Use
  Company Number: US-VERTEX PHARMACEUTICALS-2015-004003

PATIENT
  Age: 28 Year
  Sex: Male

DRUGS (1)
  1. ORKAMBI [Suspect]
     Active Substance: IVACAFTOR\LUMACAFTOR
     Indication: CYSTIC FIBROSIS
     Dosage: 400MG-250MG, BID
     Route: 048
     Dates: start: 20150928

REACTIONS (1)
  - Productive cough [Unknown]

NARRATIVE: CASE EVENT DATE: 20150930
